FAERS Safety Report 9917273 (Version 2)
Quarter: 2014Q1

REPORT INFORMATION
  Report Type: Spontaneous
  Country: US (occurrence: US)
  Receive Date: 20140221
  Receipt Date: 20140221
  Transmission Date: 20141002
  Serious: Yes (Disabling)
  Sender: FDA-Public Use
  Company Number: US-GE HEALTHCARE MEDICAL DIAGNOSTICS-OSCN-PR-0808S-0492

PATIENT
  Sex: Female

DRUGS (5)
  1. OMNISCAN [Suspect]
     Indication: PRODUCT USED FOR UNKNOWN INDICATION
     Route: 042
     Dates: start: 20051220, end: 20051220
  2. OMNISCAN [Suspect]
     Route: 042
     Dates: start: 20060309, end: 20060309
  3. OMNISCAN [Suspect]
     Route: 042
     Dates: start: 20060310, end: 20060310
  4. OMNISCAN [Suspect]
     Route: 042
     Dates: start: 20040115, end: 20040115
  5. OMNISCAN [Suspect]
     Route: 042
     Dates: start: 20040205, end: 20040205

REACTIONS (1)
  - Nephrogenic systemic fibrosis [Not Recovered/Not Resolved]
